FAERS Safety Report 18320095 (Version 1)
Quarter: 2020Q3

REPORT INFORMATION
  Report Type: Spontaneous
  Country: ES (occurrence: ES)
  Receive Date: 20200928
  Receipt Date: 20200928
  Transmission Date: 20201103
  Serious: Yes (Other)
  Sender: FDA-Public Use
  Company Number: ES-ASTRAZENECA-2020SF21999

PATIENT
  Age: 51 Year
  Sex: Male
  Weight: 91 kg

DRUGS (3)
  1. ADIRO [Concomitant]
     Active Substance: ASPIRIN
     Indication: CORONARY ARTERIAL STENT INSERTION
     Dosage: 1 TABLET AT BREAKFAST
     Route: 048
     Dates: start: 20200617
  2. CLOPIDOGREL [Concomitant]
     Active Substance: CLOPIDOGREL BISULFATE
     Indication: CORONARY ARTERIAL STENT INSERTION
     Dosage: 1 TABLET AT BREAKFAST
     Route: 048
     Dates: start: 20200617
  3. CRESTOR [Suspect]
     Active Substance: ROSUVASTATIN CALCIUM
     Indication: BLOOD CHOLESTEROL INCREASED
     Dosage: 1 TABLET OF 20 MG BEFORE GOING TO BED
     Route: 048
     Dates: start: 20200907

REACTIONS (6)
  - Feeling abnormal [Unknown]
  - Musculoskeletal pain [Unknown]
  - Insomnia [Unknown]
  - Chest discomfort [Unknown]
  - Nightmare [Unknown]
  - Muscular weakness [Unknown]

NARRATIVE: CASE EVENT DATE: 20200914
